FAERS Safety Report 4709450-7 (Version None)
Quarter: 2005Q3

REPORT INFORMATION
  Report Type: 
  Country: None (occurrence: None)
  Receive Date: 20050708
  Receipt Date: 20001006
  Transmission Date: 20060218
  Serious: Yes (Death)
  Sender: FDA-Public Use
  Company Number: GB-GLAXOSMITHKLINE-B0089490A

PATIENT
  Sex: Female

DRUGS (3)
  1. VENTOLIN [Suspect]
     Indication: ASTHMA
     Route: 055
  2. ADRENALINE [Suspect]
     Route: 065
  3. SPIRONOLACTONE [Concomitant]
     Indication: DIURETIC THERAPY
     Dosage: 1MG PER DAY

REACTIONS (3)
  - DEATH [None]
  - DRUG INEFFECTIVE [None]
  - DRUG INTERACTION [None]
